FAERS Safety Report 20849337 (Version 2)
Quarter: 2024Q1

REPORT INFORMATION
  Report Type: Report from Study
  Country: US (occurrence: US)
  Receive Date: 20220519
  Receipt Date: 20240219
  Transmission Date: 20240410
  Serious: No
  Sender: FDA-Public Use
  Company Number: US-KYOWAKIRIN-2022BKK007016

PATIENT

DRUGS (1)
  1. MOGAMULIZUMAB [Suspect]
     Active Substance: MOGAMULIZUMAB
     Indication: Cutaneous T-cell lymphoma
     Dosage: UNK
     Route: 042

REACTIONS (5)
  - Musculoskeletal discomfort [Unknown]
  - Wound [Unknown]
  - Weight increased [Unknown]
  - Nasopharyngitis [Unknown]
  - Fall [Unknown]

NARRATIVE: CASE EVENT DATE: 20240201
